FAERS Safety Report 25495964 (Version 2)
Quarter: 2025Q4

REPORT INFORMATION
  Report Type: Report from Study
  Country: GB (occurrence: GB)
  Receive Date: 20250630
  Receipt Date: 20251113
  Transmission Date: 20260118
  Serious: Yes (Hospitalization)
  Sender: SANDOZ
  Company Number: GB-SANDOZ-SDZ2025GB020290

PATIENT
  Age: 16 Year
  Sex: Male

DRUGS (3)
  1. OMNITROPE [Suspect]
     Active Substance: SOMATROPIN
     Indication: Hyperpituitarism
     Dosage: 1.50 MG, QD (OMNITROPE SUREPAL 15 15MG/1.5ML SOLUTION FOR INJECTION CARTRIDGES (SANDOZ LTD) 5 CARTRI
     Route: 058
     Dates: start: 20250325
  2. OMNITROPE [Suspect]
     Active Substance: SOMATROPIN
     Dosage: 1.50 MG, QD (OMNITROPE SUREPAL 15 15MG/1.5ML SOLUTION FOR INJECTION CARTRIDGES (SANDOZ LTD) 5 CARTRI
     Route: 058
     Dates: start: 2025
  3. OMNITROPE [Suspect]
     Active Substance: SOMATROPIN
     Dosage: 1.6 MG, QD
     Route: 058

REACTIONS (10)
  - Thyroid disorder [Unknown]
  - Fear of injection [Unknown]
  - Insomnia [Unknown]
  - Sleep terror [Unknown]
  - Tremor [Unknown]
  - Anxiety [Unknown]
  - Somnambulism [Unknown]
  - Abnormal dreams [Unknown]
  - Drug dose omission by device [Unknown]
  - Wrong technique in device usage process [Unknown]

NARRATIVE: CASE EVENT DATE: 20250401
